FAERS Safety Report 4591948-6 (Version None)
Quarter: 2005Q1

REPORT INFORMATION
  Report Type: 
  Country: None (occurrence: None)
  Receive Date: 20050222
  Receipt Date: 20050208
  Transmission Date: 20050727
  Serious: Yes (Death)
  Sender: FDA-Public Use
  Company Number: MEDI-0002857

PATIENT
  Age: 19 Month
  Sex: Female
  Weight: 9 kg

DRUGS (11)
  1. SYNAGIS [Suspect]
     Indication: ANTIVIRAL PROPHYLAXIS
     Dosage: 135 MG, 1 IN 30 D, INTRAMUSCULAR
     Route: 030
     Dates: start: 20041013, end: 20041209
  2. PULMICORT [Concomitant]
  3. XOPENEX [Concomitant]
  4. REGLAN [Concomitant]
  5. PREVACID [Concomitant]
  6. TOBRAMYCIN [Concomitant]
  7. SYNAGIS [Suspect]
     Dosage: 130.2 MG, 1 IN 30 D, INTRAMUSCULAR
     Route: 030
     Dates: start: 20041013
  8. SYNAGIS [Suspect]
     Dosage: 138.9 MG, 1 IN 30 D, INTRAMUSCULAR
     Route: 030
     Dates: start: 20041111
  9. SYNAGIS [Suspect]
  10. SYNAGIS [Suspect]
  11. SYNAGIS [Suspect]

REACTIONS (3)
  - LETHARGY [None]
  - NERVOUS SYSTEM DISORDER [None]
  - PYREXIA [None]
